FAERS Safety Report 12359505 (Version 1)
Quarter: 2016Q2

REPORT INFORMATION
  Report Type: Spontaneous
  Country: US (occurrence: None)
  Receive Date: 20160511
  Receipt Date: 20160511
  Transmission Date: 20160815
  Serious: No
  Sender: FDA-Public Use
  Company Number: None

PATIENT
  Sex: Male

DRUGS (1)
  1. IMATINIB MES TAB 100 MG SUN PHARMA [Suspect]
     Active Substance: IMATINIB
     Dosage: 2 TABS QAM, QPM PO
     Route: 048

REACTIONS (4)
  - Nausea [None]
  - Dry mouth [None]
  - Vomiting [None]
  - Abdominal pain upper [None]
